FAERS Safety Report 9709405 (Version 1)
Quarter: 2013Q4

REPORT INFORMATION
  Report Type: Spontaneous
  Country: US (occurrence: US)
  Receive Date: 20131126
  Receipt Date: 20131126
  Transmission Date: 20140711
  Serious: Yes (Death)
  Sender: FDA-Public Use
  Company Number: US-MERCK-1311USA008306

PATIENT
  Age: 82 Year
  Sex: Female

DRUGS (1)
  1. NOXAFIL [Suspect]
     Dosage: 200 MG, QD
     Route: 048
     Dates: start: 201202

REACTIONS (3)
  - Death [Fatal]
  - Myelodysplastic syndrome [Unknown]
  - Thrombocytopenic purpura [Unknown]
